FAERS Safety Report 15022517 (Version 1)
Quarter: 2018Q2

REPORT INFORMATION
  Report Type: Spontaneous
  Country: US (occurrence: US)
  Receive Date: 20180524
  Receipt Date: 20180524
  Transmission Date: 20180711
  Serious: Yes (Hospitalization)
  Sender: FDA-Public Use
  Company Number: None

PATIENT
  Age: 75 Year
  Sex: Male

DRUGS (22)
  1. MORPHINE [Concomitant]
     Active Substance: MORPHINE
  2. PYRIDOSTIGMINE [Concomitant]
     Active Substance: PYRIDOSTIGMINE
  3. ASPIRIN. [Concomitant]
     Active Substance: ASPIRIN
  4. COMNAIVENT RESPIMAT [Concomitant]
  5. GLUCERNA SHAKE [Concomitant]
  6. NICOTINE. [Concomitant]
     Active Substance: NICOTINE
  7. PREDNISONE. [Concomitant]
     Active Substance: PREDNISONE
  8. DUTASTERIDE. [Concomitant]
     Active Substance: DUTASTERIDE
  9. CALCIUM-VIT D3 [Concomitant]
  10. AMLODIPINE [Concomitant]
     Active Substance: AMLODIPINE BESYLATE
  11. CLONAZEPAM. [Concomitant]
     Active Substance: CLONAZEPAM
  12. GABAPENTIN. [Concomitant]
     Active Substance: GABAPENTIN
  13. OYSTER SHELL [Concomitant]
     Active Substance: OSTREA EDULIS SHELL
  14. PRAZOSIN. [Concomitant]
     Active Substance: PRAZOSIN
  15. SULFAMETHOXAZOLE-TRIMETHOPRIM [Concomitant]
     Active Substance: SULFAMETHOXAZOLE\TRIMETHOPRIM
  16. MAVYRET [Suspect]
     Active Substance: GLECAPREVIR\PIBRENTASVIR
     Route: 048
     Dates: start: 20171208, end: 20180407
  17. DULOXETINE. [Concomitant]
     Active Substance: DULOXETINE
  18. BACLOFEN. [Concomitant]
     Active Substance: BACLOFEN
  19. METFORMIN [Concomitant]
     Active Substance: METFORMIN HYDROCHLORIDE
  20. QVAR [Concomitant]
     Active Substance: BECLOMETHASONE DIPROPIONATE
  21. BASAGLAR [Concomitant]
     Active Substance: INSULIN GLARGINE
  22. CHANTIX [Concomitant]
     Active Substance: VARENICLINE TARTRATE

REACTIONS (7)
  - Sputum increased [None]
  - Myasthenia gravis [None]
  - Diarrhoea [None]
  - Muscular weakness [None]
  - Cough [None]
  - Chronic obstructive pulmonary disease [None]
  - Dyspnoea [None]

NARRATIVE: CASE EVENT DATE: 20180227
